FAERS Safety Report 10098965 (Version 1)
Quarter: 2014Q2

REPORT INFORMATION
  Report Type: Spontaneous
  Country: GB (occurrence: GB)
  Receive Date: 20140423
  Receipt Date: 20140423
  Transmission Date: 20141212
  Serious: Yes (Congenital Anomaly)
  Sender: FDA-Public Use
  Company Number: PHHY2014GB046056

PATIENT
  Sex: Male

DRUGS (6)
  1. METHOTREXATE [Suspect]
     Dosage: 15 MG, QW
     Route: 050
  2. CALCIUM + VITAMIN D [Concomitant]
     Route: 050
  3. RITUXIMAB [Concomitant]
     Route: 050
  4. RAMIPRIL [Concomitant]
     Route: 050
  5. METFORMIN [Concomitant]
     Route: 050
  6. OMEPRAZOLE [Concomitant]
     Route: 050

REACTIONS (2)
  - Premature baby [Unknown]
  - Heart disease congenital [Not Recovered/Not Resolved]
